FAERS Safety Report 24668524 (Version 3)
Quarter: 2025Q1

REPORT INFORMATION
  Report Type: Spontaneous
  Country: US (occurrence: US)
  Receive Date: 20241127
  Receipt Date: 20250102
  Transmission Date: 20250409
  Serious: No
  Sender: NOVARTIS
  Company Number: US-002147023-NVSC2024US226793

PATIENT
  Sex: Female

DRUGS (1)
  1. MEKINIST [Suspect]
     Active Substance: TRAMETINIB DIMETHYL SULFOXIDE
     Indication: Ovarian cancer
     Dosage: 2 MG, QD
     Route: 048
     Dates: start: 202411

REACTIONS (7)
  - Gastrointestinal disorder [Unknown]
  - Rosacea [Unknown]
  - Fatigue [Recovering/Resolving]
  - Rash [Unknown]
  - Headache [Unknown]
  - Abdominal pain upper [Unknown]
  - Dry skin [Unknown]
